FAERS Safety Report 17846535 (Version 2)
Quarter: 2020Q2

REPORT INFORMATION
  Report Type: Spontaneous
  Country: CA (occurrence: CA)
  Receive Date: 20200601
  Receipt Date: 20200619
  Transmission Date: 20200714
  Serious: Yes (Hospitalization, Other)
  Sender: FDA-Public Use
  Company Number: CA-TEVA-2020-CA-1242366

PATIENT
  Age: 56 Year
  Sex: Female
  Weight: 59 kg

DRUGS (4)
  1. PACLITAXEL. [Suspect]
     Active Substance: PACLITAXEL
     Indication: OVARIAN ENDOMETRIOID CARCINOMA
     Route: 042
  2. DEXAMETHASONE. [Concomitant]
     Active Substance: DEXAMETHASONE
     Route: 014
  3. RANITIDINE. [Concomitant]
     Active Substance: RANITIDINE
     Route: 030
  4. DIPHENHYDRAMINE HYDROCHLORIDE INJECTION USP [Concomitant]
     Active Substance: DIPHENHYDRAMINE HYDROCHLORIDE
     Route: 030

REACTIONS (7)
  - Seizure like phenomena [Recovered/Resolved]
  - Erythema [Recovered/Resolved]
  - Pupil fixed [Recovered/Resolved]
  - Urinary incontinence [Recovered/Resolved]
  - Vital functions abnormal [Recovered/Resolved]
  - Feeling hot [Recovered/Resolved]
  - Unresponsive to stimuli [Recovered/Resolved]
